FAERS Safety Report 14080087 (Version 1)
Quarter: 2017Q4

REPORT INFORMATION
  Report Type: Spontaneous
  Country: US (occurrence: US)
  Receive Date: 20171012
  Receipt Date: 20171012
  Transmission Date: 20180321
  Serious: No
  Sender: FDA-Public Use
  Company Number: US-MYLANLABS-2017M1028190

PATIENT
  Sex: Female

DRUGS (2)
  1. FENTANYL. [Suspect]
     Active Substance: FENTANYL
     Indication: PAIN
     Dosage: 75 ?G, QH
  2. FENTANYL. [Suspect]
     Active Substance: FENTANYL
     Dosage: 100 ?G, QH

REACTIONS (1)
  - Drug ineffective [Recovered/Resolved]
